FAERS Safety Report 9479688 (Version 2)
Quarter: 2013Q3

REPORT INFORMATION
  Report Type: Report from Study
  Country: US (occurrence: US)
  Receive Date: 20130828
  Receipt Date: 20130911
  Transmission Date: 20140515
  Serious: Yes (Death)
  Sender: FDA-Public Use
  Company Number: US-ROCHE-1267318

PATIENT
  Age: 25 Year
  Sex: Male

DRUGS (2)
  1. CELLCEPT [Suspect]
     Indication: LUNG TRANSPLANT
     Route: 048
  2. VALCYTE [Suspect]
     Indication: LUNG TRANSPLANT
     Route: 048

REACTIONS (1)
  - Acute respiratory failure [Fatal]
